FAERS Safety Report 10306925 (Version 8)
Quarter: 2015Q1

REPORT INFORMATION
  Report Type: Spontaneous
  Country: US (occurrence: US)
  Receive Date: 20140715
  Receipt Date: 20150325
  Transmission Date: 20150720
  Serious: Yes (Life-Threatening, Hospitalization, Disabling, Congenital Anomaly, Other)
  Sender: FDA-Public Use
  Company Number: US-ELI_LILLY_AND_COMPANY-US201407001923

PATIENT
  Age: 0 Day

DRUGS (2)
  1. PROZAC [Suspect]
     Active Substance: FLUOXETINE HYDROCHLORIDE
     Indication: DEPRESSION
     Dosage: 50 MG, QD
     Route: 064
  2. PROZAC [Suspect]
     Active Substance: FLUOXETINE HYDROCHLORIDE
     Indication: DEPRESSION
     Dosage: 50 MG, QD
     Route: 064

REACTIONS (23)
  - Low birth weight baby [Unknown]
  - Loss of consciousness [Unknown]
  - Staphylococcal sepsis [Unknown]
  - Pneumonia [Unknown]
  - Deafness [Recovered/Resolved]
  - Foetal exposure during pregnancy [Recovered/Resolved]
  - Fatigue [Unknown]
  - Cardiac valve disease [Unknown]
  - Cerebral haemorrhage neonatal [Unknown]
  - Premature baby [Recovered/Resolved]
  - Seizure [Unknown]
  - Bronchitis [Unknown]
  - Ventricular septal defect [Unknown]
  - Asthma [Unknown]
  - Pulmonary valve stenosis [Unknown]
  - Mental disability [Unknown]
  - Staring [Unknown]
  - Developmental delay [Unknown]
  - Hypoxic-ischaemic encephalopathy [Unknown]
  - Cerebral palsy [Unknown]
  - Patent ductus arteriosus [Unknown]
  - Neonatal respiratory distress syndrome [Unknown]
  - Joint dislocation [Recovered/Resolved]

NARRATIVE: CASE EVENT DATE: 19941201
